FAERS Safety Report 18674412 (Version 1)
Quarter: 2020Q4

REPORT INFORMATION
  Report Type: Spontaneous
  Country: US (occurrence: US)
  Receive Date: 20201228
  Receipt Date: 20201228
  Transmission Date: 20210114
  Serious: Yes (Hospitalization)
  Sender: FDA-Public Use
  Company Number: None

PATIENT
  Age: 73 Year
  Sex: Male
  Weight: 82.1 kg

DRUGS (1)
  1. BAMLANIVIMAB. [Suspect]
     Active Substance: BAMLANIVIMAB
     Indication: COVID-19 TREATMENT
     Dates: start: 20201130, end: 20201130

REACTIONS (4)
  - Mental status changes [None]
  - Confusional state [None]
  - Encephalopathy [None]
  - Delirium [None]

NARRATIVE: CASE EVENT DATE: 20201217
